FAERS Safety Report 14919663 (Version 3)
Quarter: 2018Q4

REPORT INFORMATION
  Report Type: Spontaneous
  Country: JP (occurrence: JP)
  Receive Date: 20180521
  Receipt Date: 20181206
  Transmission Date: 20190204
  Serious: Yes (Life-Threatening, Hospitalization, Other)
  Sender: FDA-Public Use
  Company Number: JP-PFIZER INC-2018203011

PATIENT
  Age: 79 Year
  Sex: Male
  Weight: 41 kg

DRUGS (2)
  1. XELJANZ [Suspect]
     Active Substance: TOFACITINIB CITRATE
     Indication: RHEUMATOID ARTHRITIS
     Dosage: 5 MG, 2X/DAY
     Route: 048
     Dates: start: 20180410, end: 20180511
  2. PREDONINE [Suspect]
     Active Substance: PREDNISOLONE
     Indication: RHEUMATOID ARTHRITIS
     Dosage: 8 MG, DAILY
     Route: 048
     Dates: end: 20180511

REACTIONS (1)
  - Staphylococcal sepsis [Recovering/Resolving]

NARRATIVE: CASE EVENT DATE: 20180512
